FAERS Safety Report 9170667 (Version 1)
Quarter: 2013Q1

REPORT INFORMATION
  Report Type: Spontaneous
  Country: GB (occurrence: None)
  Receive Date: 20130312
  Receipt Date: 20130312
  Transmission Date: 20140127
  Serious: No
  Sender: FDA-Public Use
  Company Number: A1014822A

PATIENT
  Sex: Female
  Weight: 3.49 kg

DRUGS (3)
  1. LEVETIRACETAM [Suspect]
     Dosage: TRANSPLACENTARY
  2. LAMOTRIGINE (LAMOTRIGINE) [Suspect]
     Dosage: TRANSPLACENTARY
  3. CARBAMAZEPINE [Suspect]
     Dosage: TRANSPLACENTARY

REACTIONS (4)
  - Maternal drugs affecting foetus [None]
  - Spina bifida [None]
  - Congenital hydrocephalus [None]
  - Talipes [None]
